FAERS Safety Report 19739462 (Version 4)
Quarter: 2021Q4

REPORT INFORMATION
  Report Type: Report from Study
  Country: US (occurrence: US)
  Receive Date: 20210824
  Receipt Date: 20211117
  Transmission Date: 20220303
  Serious: No
  Sender: FDA-Public Use
  Company Number: US-NOVARTISTESTPH-NVSC2021US188415

PATIENT
  Sex: Female

DRUGS (1)
  1. KESIMPTA [Suspect]
     Active Substance: OFATUMUMAB
     Indication: Product used for unknown indication
     Dosage: 0.4 ML
     Route: 065
     Dates: start: 20210815

REACTIONS (4)
  - Gait disturbance [Recovering/Resolving]
  - Asthenia [Recovering/Resolving]
  - Chills [Recovering/Resolving]
  - Pyrexia [Recovering/Resolving]
